FAERS Safety Report 9948425 (Version 1)
Quarter: 2014Q1

REPORT INFORMATION
  Report Type: Spontaneous
  Country: US (occurrence: None)
  Receive Date: 20140228
  Receipt Date: 20140228
  Transmission Date: 20141002
  Serious: Yes (Hospitalization)
  Sender: FDA-Public Use
  Company Number: DL2014-0211

PATIENT
  Age: 19 Year
  Sex: Female

DRUGS (3)
  1. MIFEPRISTONE [Suspect]
     Indication: ABORTION INDUCED
     Route: 048
     Dates: start: 20140212
  2. MISOPROSTOL [Suspect]
     Route: 067
  3. AZITHROMYCIN [Concomitant]

REACTIONS (5)
  - Abortion incomplete [None]
  - Pain [None]
  - Pyrexia [None]
  - Vomiting [None]
  - Infection [None]
